FAERS Safety Report 4631097-1 (Version None)
Quarter: 2005Q2

REPORT INFORMATION
  Report Type: 
  Country: None (occurrence: None)
  Receive Date: 20050406
  Receipt Date: 20050406
  Transmission Date: 20051028
  Serious: Yes (Hospitalization)
  Sender: FDA-Public Use
  Company Number: None

PATIENT
  Age: 75 Year
  Sex: Female
  Weight: 85.9 kg

DRUGS (12)
  1. KEFLEX [Suspect]
  2. LOPID [Concomitant]
  3. LIPITOR [Concomitant]
  4. LEVOTHROID [Concomitant]
  5. AMITRIPTYLINE HCL TAB [Concomitant]
  6. LISINOPRIL [Concomitant]
  7. GLUCOTROL [Concomitant]
  8. GLUCOPHAGE [Concomitant]
  9. PRILOSEC [Concomitant]
  10. ATENOLOL [Concomitant]
  11. AVANDIA [Concomitant]
  12. ASPIRIN [Concomitant]

REACTIONS (3)
  - FEELING ABNORMAL [None]
  - NEPHRITIS INTERSTITIAL [None]
  - URINE OUTPUT DECREASED [None]
